FAERS Safety Report 6113686-0 (Version None)
Quarter: 2009Q1

REPORT INFORMATION
  Report Type: 
  Country: None (occurrence: None)
  Receive Date: 20090312
  Receipt Date: 20090304
  Transmission Date: 20090719
  Serious: Yes (Other)
  Sender: FDA-Public Use
  Company Number: GR-PFIZER INC-2009177826

PATIENT

DRUGS (7)
  1. LIPITOR [Suspect]
     Dosage: UNK
     Route: 048
     Dates: start: 20070101
  2. JANUVIA [Suspect]
     Indication: DIABETES MELLITUS
     Dosage: 1X1, 100 MG ONCE DAILY
     Route: 048
     Dates: start: 20080920, end: 20081024
  3. JANUVIA [Suspect]
     Dosage: 1X1, 100 MG ONCE DAILY
     Route: 048
     Dates: start: 20080920, end: 20081003
  4. SOLOSA [Concomitant]
     Indication: DIABETES MELLITUS
     Dosage: 1X2, 2 MG TWICE DAILY
     Route: 048
     Dates: start: 20070101
  5. GLUCOPHAGE [Concomitant]
     Indication: DIABETES MELLITUS
     Dosage: 1X1, 850 MG ONCE DAILY
     Route: 048
     Dates: start: 20070101
  6. DILATREND [Concomitant]
     Indication: CORONARY ARTERY DISEASE
     Dosage: 1/4X1, 1/4 OF 6.25 MG ONCE DAILY
     Route: 048
     Dates: start: 20070101
  7. SALOSPIR [Concomitant]
     Indication: CORONARY ARTERY DISEASE
     Dosage: 1X1, 100 MG ONCE DAILY
     Route: 048
     Dates: start: 20070101

REACTIONS (3)
  - ASTHENIA [None]
  - HEADACHE [None]
  - MYOPATHY [None]
